FAERS Safety Report 10457132 (Version 1)
Quarter: 2014Q3

REPORT INFORMATION
  Report Type: Spontaneous
  Country: US (occurrence: US)
  Receive Date: 20140916
  Receipt Date: 20140916
  Transmission Date: 20150326
  Serious: Yes (Hospitalization)
  Sender: FDA-Public Use
  Company Number: US-SA-2014SA122641

PATIENT
  Age: 62 Year
  Sex: Female
  Weight: 52.6 kg

DRUGS (20)
  1. LACTOBACILLUS ACIDOPHILUS/LACTOBACILLUS BULGARICUS [Concomitant]
     Route: 048
  2. ROXICODONE [Concomitant]
     Active Substance: OXYCODONE HYDROCHLORIDE
     Dosage: 5 MG AS NEEDED
     Route: 048
  3. MS CONTIN [Concomitant]
     Active Substance: MORPHINE SULFATE
     Route: 048
  4. RED BLOOD CELLS [Concomitant]
     Active Substance: HUMAN RED BLOOD CELL
     Dosage: 2 UNITS
     Dates: start: 2014, end: 2014
  5. VITAMIN D [Concomitant]
     Active Substance: CHOLECALCIFEROL
     Dosage: DOSE:1000 UNIT(S)
     Route: 048
  6. SYNTHROID [Concomitant]
     Active Substance: LEVOTHYROXINE SODIUM
     Route: 048
  7. LOVENOX [Concomitant]
     Active Substance: ENOXAPARIN SODIUM
  8. NORMAL SALINE [Concomitant]
     Active Substance: SODIUM CHLORIDE
  9. PACERONE [Concomitant]
     Active Substance: AMIODARONE HYDROCHLORIDE
     Dosage: 1 IN 3 D
     Route: 048
  10. VITAMIN B12 [Concomitant]
     Active Substance: CYANOCOBALAMIN
     Route: 048
  11. MEGACE [Concomitant]
     Active Substance: MEGESTROL ACETATE
     Route: 048
  12. GLUCOPHAGE [Concomitant]
     Active Substance: METFORMIN HYDROCHLORIDE
     Dosage: 500 MG WITH MEALS
     Route: 048
  13. HEPARIN-FRACTION, SODIUM SALT [Concomitant]
     Active Substance: HEPARIN SODIUM
     Route: 058
  14. FERROUS SULFATE [Concomitant]
     Active Substance: FERROUS SULFATE\FERROUS SULFATE, DRIED
     Route: 048
  15. ATIVAN [Concomitant]
     Active Substance: LORAZEPAM
     Route: 048
  16. LOVENOX [Suspect]
     Active Substance: ENOXAPARIN SODIUM
     Route: 058
  17. COREG [Concomitant]
     Active Substance: CARVEDILOL
     Route: 048
  18. LANOXIN [Concomitant]
     Active Substance: DIGOXIN
     Route: 048
  19. ONE-A-DAY [Concomitant]
     Route: 048
  20. PROTONIX [Concomitant]
     Active Substance: PANTOPRAZOLE SODIUM
     Route: 048

REACTIONS (2)
  - Musculoskeletal chest pain [Not Recovered/Not Resolved]
  - Thoracic haemorrhage [Not Recovered/Not Resolved]

NARRATIVE: CASE EVENT DATE: 20140817
